FAERS Safety Report 5555993-6 (Version None)
Quarter: 2007Q4

REPORT INFORMATION
  Report Type: 
  Country: None (occurrence: None)
  Receive Date: 20071213
  Receipt Date: 20071203
  Transmission Date: 20080405
  Serious: Yes (Other)
  Sender: FDA-Public Use
  Company Number: IT-PFIZER INC-2007102179

PATIENT
  Age: 33 Year
  Sex: Male

DRUGS (1)
  1. SOLU-MEDROL [Suspect]
     Dosage: DAILY DOSE:2.5GRAM
     Route: 042

REACTIONS (1)
  - HEPATITIS ACUTE [None]
